FAERS Safety Report 24724284 (Version 1)
Quarter: 2024Q4

REPORT INFORMATION
  Report Type: Spontaneous
  Country: US (occurrence: US)
  Receive Date: 20241212
  Receipt Date: 20241212
  Transmission Date: 20250114
  Serious: Yes (Other)
  Sender: STRIDES
  Company Number: US-STRIDES ARCOLAB LIMITED-2024SP016422

PATIENT
  Age: 3 Decade
  Sex: Female

DRUGS (20)
  1. ETOPOSIDE [Suspect]
     Active Substance: ETOPOSIDE
     Indication: Spindle cell sarcoma
     Dosage: UNK
     Route: 065
  2. ETOPOSIDE [Suspect]
     Active Substance: ETOPOSIDE
     Indication: Neoplasm malignant
  3. DOXORUBICIN [Suspect]
     Active Substance: DOXORUBICIN
     Indication: Spindle cell sarcoma
     Dosage: UNK, CYCLICAL (2 CYCLES)
     Route: 065
  4. DOXORUBICIN [Suspect]
     Active Substance: DOXORUBICIN
     Indication: Neoplasm malignant
  5. IFOSFAMIDE [Suspect]
     Active Substance: IFOSFAMIDE
     Indication: Spindle cell sarcoma
     Dosage: UNK, CYCLICAL (2 CYCLES)
     Route: 065
  6. IFOSFAMIDE [Suspect]
     Active Substance: IFOSFAMIDE
     Indication: Neoplasm malignant
     Dosage: UNK
     Route: 065
  7. CISPLATIN [Suspect]
     Active Substance: CISPLATIN
     Indication: Spindle cell sarcoma
     Dosage: UNK
     Route: 065
  8. CISPLATIN [Suspect]
     Active Substance: CISPLATIN
     Indication: Neoplasm malignant
  9. GEMCITABINE [Suspect]
     Active Substance: GEMCITABINE
     Indication: Spindle cell sarcoma
     Dosage: UNK
     Route: 065
  10. GEMCITABINE [Suspect]
     Active Substance: GEMCITABINE
     Indication: Neoplasm malignant
  11. CYCLOPHOSPHAMIDE [Suspect]
     Active Substance: CYCLOPHOSPHAMIDE
     Indication: Spindle cell sarcoma
     Dosage: UNK
     Route: 065
  12. CYCLOPHOSPHAMIDE [Suspect]
     Active Substance: CYCLOPHOSPHAMIDE
     Indication: Neoplasm malignant
  13. EPIRUBICIN [Suspect]
     Active Substance: EPIRUBICIN
     Indication: Spindle cell sarcoma
     Dosage: UNK
     Route: 065
  14. EPIRUBICIN [Suspect]
     Active Substance: EPIRUBICIN
     Indication: Neoplasm malignant
  15. DIETARY SUPPLEMENT\RESVERATROL [Suspect]
     Active Substance: DIETARY SUPPLEMENT\RESVERATROL
     Indication: Spindle cell sarcoma
     Dosage: UNK
     Route: 065
  16. DIETARY SUPPLEMENT\RESVERATROL [Suspect]
     Active Substance: DIETARY SUPPLEMENT\RESVERATROL
     Indication: Neoplasm malignant
  17. MITOMYCIN [Suspect]
     Active Substance: MITOMYCIN
     Indication: Spindle cell sarcoma
     Dosage: UNK
     Route: 065
  18. MITOMYCIN [Suspect]
     Active Substance: MITOMYCIN
     Indication: Neoplasm malignant
  19. TOPOTECAN [Suspect]
     Active Substance: TOPOTECAN HYDROCHLORIDE
     Indication: Spindle cell sarcoma
     Dosage: UNK
     Route: 065
  20. TOPOTECAN [Suspect]
     Active Substance: TOPOTECAN HYDROCHLORIDE
     Indication: Neoplasm malignant

REACTIONS (3)
  - Malignant neoplasm progression [Unknown]
  - Drug ineffective [Unknown]
  - Off label use [Unknown]
